FAERS Safety Report 4931885-8 (Version None)
Quarter: 2006Q1

REPORT INFORMATION
  Report Type: 
  Country: None (occurrence: None)
  Receive Date: 20060303
  Receipt Date: 20050930
  Transmission Date: 20060701
  Serious: Yes (Other)
  Sender: FDA-Public Use
  Company Number: US-MERCK-0510USA02155

PATIENT
  Age: 71 Year
  Sex: Female
  Weight: 52 kg

DRUGS (3)
  1. ASPIRIN [Concomitant]
     Route: 065
  2. DITROPAN [Concomitant]
     Route: 065
  3. VIOXX [Suspect]
     Indication: MONARTHRITIS
     Route: 048
     Dates: start: 20000801, end: 20020401

REACTIONS (5)
  - CEREBROVASCULAR ACCIDENT [None]
  - HEAD INJURY [None]
  - HEMIPARESIS [None]
  - HYSTERECTOMY [None]
  - TRANSIENT ISCHAEMIC ATTACK [None]
